FAERS Safety Report 8802385 (Version 2)
Quarter: 2012Q4

REPORT INFORMATION
  Report Type: 
  Country: US (occurrence: US)
  Receive Date: 20120921
  Receipt Date: 20120925
  Transmission Date: 20130627
  Serious: Yes (Death, Hospitalization, Other)
  Sender: FDA-Public Use
  Company Number: US-US-EMD SERONO, INC.-7162561

PATIENT
  Age: 58 Year
  Sex: Male
  Weight: 78 kg

DRUGS (14)
  1. EGRIFTA [Suspect]
     Indication: LIPODYSTROPHY ACQUIRED
     Route: 058
     Dates: start: 20120402
  2. FLAGYL [Concomitant]
     Indication: PRODUCT USED FOR UNKNOWN INDICATION
  3. HYDROMORPHONE [Concomitant]
     Indication: PRODUCT USED FOR UNKNOWN INDICATION
  4. LASIX [Concomitant]
     Indication: CARDIAC DISORDER
  5. WARFARIN [Concomitant]
     Indication: CARDIAC DISORDER
  6. HYDROCORTISONE TREATMENT [Concomitant]
     Indication: PRODUCT USED FOR UNKNOWN INDICATION
  7. TRUVADA [Concomitant]
     Indication: HIV INFECTION
  8. PREZISTA [Concomitant]
     Indication: HIV INFECTION
  9. NORVIR [Concomitant]
     Indication: HIV INFECTION
  10. LOVENOX [Concomitant]
     Indication: CARDIAC DISORDER
  11. METOPROLOL [Concomitant]
     Indication: CARDIAC DISORDER
  12. LIPITOR [Concomitant]
     Indication: CARDIAC DISORDER
  13. LISINOPRIL [Concomitant]
     Indication: CARDIAC DISORDER
  14. IMDUR [Concomitant]
     Indication: CARDIAC DISORDER

REACTIONS (5)
  - Respiratory failure [Fatal]
  - Acute myocardial infarction [Fatal]
  - Deep vein thrombosis [Unknown]
  - Cellulitis [Unknown]
  - Clostridium difficile colitis [Unknown]
